FAERS Safety Report 9907996 (Version 1)
Quarter: 2014Q1

REPORT INFORMATION
  Report Type: Report from Study
  Country: GB (occurrence: GB)
  Receive Date: 20140219
  Receipt Date: 20140219
  Transmission Date: 20141002
  Serious: Yes (Hospitalization)
  Sender: FDA-Public Use
  Company Number: GB-009507513-1402GBR006966

PATIENT
  Sex: Male
  Weight: 109.8 kg

DRUGS (6)
  1. VORINOSTAT [Suspect]
     Dosage: 300 MG, BID
     Route: 048
     Dates: start: 20131218
  2. AZACITIDINE [Suspect]
     Dosage: 085.0 MG/M2, UNK
     Route: 058
     Dates: start: 20131216, end: 20140121
  3. CO-AMOXI [Concomitant]
     Indication: INFECTION
     Dosage: UNK
     Dates: start: 20140124, end: 20140128
  4. DIGOXIN [Concomitant]
     Indication: ATRIAL FIBRILLATION
     Dosage: UNK
     Dates: end: 20140128
  5. ACYCLOVIR [Concomitant]
     Indication: PROPHYLAXIS
     Dosage: UNK
     Dates: end: 20140128
  6. LANSOPRAZOLE [Concomitant]
     Dosage: UNK

REACTIONS (1)
  - Social problem [Not Recovered/Not Resolved]
